FAERS Safety Report 16354669 (Version 1)
Quarter: 2019Q2

REPORT INFORMATION
  Report Type: Spontaneous
  Country: CA (occurrence: CA)
  Receive Date: 20190524
  Receipt Date: 20190524
  Transmission Date: 20190711
  Serious: Yes (Congenital Anomaly)
  Sender: FDA-Public Use
  Company Number: CA-PFIZER INC-13266

PATIENT
  Sex: Male

DRUGS (6)
  1. METHADONE [Concomitant]
     Active Substance: METHADONE HYDROCHLORIDE
     Dosage: 90 MG, DAILY
     Route: 064
  2. EFAVIRENZ. [Concomitant]
     Active Substance: EFAVIRENZ
     Dosage: UNK
     Route: 064
  3. SEPTRA [Concomitant]
     Active Substance: SULFAMETHOXAZOLE\TRIMETHOPRIM
     Dosage: UNK
     Route: 064
  4. PENTAMIDINE [Concomitant]
     Active Substance: PENTAMIDINE
     Dosage: UNK
     Route: 064
  5. NEVIRAPINE. [Concomitant]
     Active Substance: NEVIRAPINE
     Dosage: 400 MG, DAILY
     Route: 064
  6. FLUCONAZOLE. [Suspect]
     Active Substance: FLUCONAZOLE
     Indication: VULVOVAGINAL CANDIDIASIS
     Dosage: 800 MG, DAILY
     Route: 064

REACTIONS (10)
  - Skull malformation [Not Recovered/Not Resolved]
  - Hypertelorism of orbit [Not Recovered/Not Resolved]
  - Congenital eyelid malformation [Not Recovered/Not Resolved]
  - Dysmorphism [Not Recovered/Not Resolved]
  - Congenital nose malformation [Not Recovered/Not Resolved]
  - Synostosis [Not Recovered/Not Resolved]
  - Radioulnar synostosis [Not Recovered/Not Resolved]
  - Eyelid ptosis congenital [Not Recovered/Not Resolved]
  - Maternal exposure during pregnancy [Not Recovered/Not Resolved]
  - Deafness bilateral [Not Recovered/Not Resolved]
